FAERS Safety Report 5776184-X (Version None)
Quarter: 2008Q2

REPORT INFORMATION
  Report Type: 
  Country: None (occurrence: None)
  Receive Date: 20080613
  Receipt Date: 20080529
  Transmission Date: 20081010
  Serious: Yes (Death, Hospitalization)
  Sender: FDA-Public Use
  Company Number: 2008000410

PATIENT
  Age: 60 Year
  Sex: Male

DRUGS (11)
  1. ERLOTINIB (ERLOTINIB HCL) (TABLET) (ERLOTINIB HCL) [Suspect]
     Indication: LUNG ADENOCARCINOMA
     Dosage: (150 MG, QD), ORAL
     Route: 048
     Dates: start: 20080204, end: 20080212
  2. OXYCONTIN [Concomitant]
  3. MOHRUS (KETOPROFEN) [Concomitant]
  4. LOXONIN (LOXOPROFEN SODIUM) [Concomitant]
  5. ZANTAC [Concomitant]
  6. ADALAT [Concomitant]
  7. MYONAL (EPERISONE HYDROCHLORIDE) [Concomitant]
  8. MUCOSTA (REBAMIPIDE) [Concomitant]
  9. THIATON (TIQUIZIUM BROMIDE) [Concomitant]
  10. MAGNESIUM OXIDE (MAGNESIUM OXIDE) [Concomitant]
  11. DICLOFENAC SODIUM [Concomitant]

REACTIONS (2)
  - DISEASE PROGRESSION [None]
  - INTERSTITIAL LUNG DISEASE [None]
